FAERS Safety Report 8411479-2 (Version None)
Quarter: 2012Q2

REPORT INFORMATION
  Report Type: 
  Country: None (occurrence: None)
  Receive Date: 20120605
  Receipt Date: 20120509
  Transmission Date: 20120825
  Serious: No
  Sender: FDA-Public Use
  Company Number: US-AMGEN-USASP2012029365

PATIENT
  Age: 49 Year
  Sex: Female

DRUGS (5)
  1. SULFASALAZINE [Concomitant]
     Dosage: UNK
  2. METHOTREXATE [Concomitant]
     Dosage: UNK
  3. ENBREL [Suspect]
     Indication: RHEUMATOID ARTHRITIS
     Dosage: 50 MG, QWK
     Dates: start: 20111201, end: 20120301
  4. PLAQUENIL [Concomitant]
     Dosage: UNK
  5. ARAVA [Concomitant]
     Dosage: UNK

REACTIONS (1)
  - CELLULITIS [None]
